FAERS Safety Report 5138619-5 (Version None)
Quarter: 2006Q4

REPORT INFORMATION
  Report Type: 
  Country: None (occurrence: None)
  Receive Date: 20061030
  Receipt Date: 20060926
  Transmission Date: 20070319
  Serious: Yes (Other)
  Sender: FDA-Public Use
  Company Number: JP-JPN-A200603868

PATIENT
  Age: 69 Year
  Sex: Female

DRUGS (3)
  1. ZOVIRAX [Suspect]
     Indication: HERPES ZOSTER
     Route: 048
     Dates: start: 20060830
  2. LOXONIN [Concomitant]
     Route: 065
     Dates: start: 20060830
  3. MUCOSTA [Concomitant]
     Route: 048
     Dates: start: 20060830

REACTIONS (4)
  - ABDOMINAL PAIN UPPER [None]
  - GASTRIC ULCER [None]
  - NAUSEA [None]
  - VOMITING [None]
